FAERS Safety Report 8310759-9 (Version None)
Quarter: 2012Q2

REPORT INFORMATION
  Report Type: 
  Country: None (occurrence: None)
  Receive Date: 20120425
  Receipt Date: 20120420
  Transmission Date: 20120825
  Serious: Yes (Other)
  Sender: FDA-Public Use
  Company Number: JP-PFIZER INC-2012097938

PATIENT
  Age: 25 Year
  Sex: Female

DRUGS (5)
  1. ONON [Concomitant]
     Dosage: UNK
  2. RESPLEN [Concomitant]
     Dosage: UNK
  3. MUCODYNE [Concomitant]
     Dosage: UNK
  4. ZITHROMAX [Suspect]
     Indication: PERTUSSIS
     Dosage: UNK
     Route: 048
     Dates: start: 20120418
  5. ZITHROMAX [Suspect]
     Indication: MYCOPLASMA INFECTION

REACTIONS (2)
  - HEADACHE [None]
  - DYSPNOEA [None]
